FAERS Safety Report 8548720-1 (Version None)
Quarter: 2012Q3

REPORT INFORMATION
  Report Type: 
  Country: None (occurrence: None)
  Receive Date: 20120730
  Receipt Date: 20120723
  Transmission Date: 20120928
  Serious: Yes (Hospitalization, Other)
  Sender: FDA-Public Use
  Company Number: PHHY2012FR064354

PATIENT
  Sex: Female

DRUGS (7)
  1. SINGULAIR [Concomitant]
  2. CRESTOR [Suspect]
     Indication: HYPERCHOLESTEROLAEMIA
     Dosage: 10 MG, UNK
     Dates: start: 20070101, end: 20120513
  3. VENTOLIN [Concomitant]
  4. IMATINIB MESYLATE [Suspect]
     Dosage: 300 MG A DAY
     Route: 048
     Dates: end: 20120522
  5. ACETAMINOPHEN [Concomitant]
  6. SYMBICORT [Concomitant]
  7. IMATINIB MESYLATE [Suspect]
     Indication: MYELOPROLIFERATIVE DISORDER
     Dosage: 400 MG A DAY
     Route: 048
     Dates: start: 20120118

REACTIONS (8)
  - PERIPORTAL OEDEMA [None]
  - DRUG-INDUCED LIVER INJURY [None]
  - JAUNDICE [None]
  - PANCREATIC ENLARGEMENT [None]
  - HEPATIC NECROSIS [None]
  - LIVER FUNCTION TEST ABNORMAL [None]
  - CYTOLYTIC HEPATITIS [None]
  - ABDOMINAL PAIN UPPER [None]
